FAERS Safety Report 6537036-0 (Version None)
Quarter: 2010Q1

REPORT INFORMATION
  Report Type: 
  Country: None (occurrence: None)
  Receive Date: 20100114
  Receipt Date: 20100112
  Transmission Date: 20100710
  Serious: Yes (Hospitalization, Other)
  Sender: FDA-Public Use
  Company Number: US-ASTRAZENECA-2009UW20564

PATIENT
  Age: 35 Year
  Sex: Female
  Weight: 61.2 kg

DRUGS (9)
  1. SEROQUEL [Suspect]
     Indication: BIPOLAR DISORDER
     Route: 048
     Dates: start: 20010101, end: 20040101
  2. SEROQUEL [Suspect]
     Indication: SCHIZOPHRENIA
     Route: 048
     Dates: start: 20010101, end: 20040101
  3. GEODON [Concomitant]
     Indication: BIPOLAR DISORDER
     Dates: start: 20040101
  4. GEODON [Concomitant]
     Indication: POST-TRAUMATIC STRESS DISORDER
     Dates: start: 20040101
  5. HALDOL [Concomitant]
     Dates: start: 19990101
  6. WELLBUTRIN XL [Concomitant]
     Indication: BIPOLAR DISORDER
  7. WELLBUTRIN XL [Concomitant]
     Indication: POST-TRAUMATIC STRESS DISORDER
  8. ZOLOFT [Concomitant]
     Indication: BIPOLAR DISORDER
  9. ZOLOFT [Concomitant]
     Indication: POST-TRAUMATIC STRESS DISORDER

REACTIONS (6)
  - BLOOD CHOLESTEROL INCREASED [None]
  - HYPERLIPIDAEMIA [None]
  - KETOACIDOSIS [None]
  - MENTAL DISORDER [None]
  - PANCREATITIS [None]
  - TYPE 2 DIABETES MELLITUS [None]
